FAERS Safety Report 13510738 (Version 4)
Quarter: 2018Q1

REPORT INFORMATION
  Report Type: Spontaneous
  Country: JP (occurrence: JP)
  Receive Date: 20170503
  Receipt Date: 20180118
  Transmission Date: 20180508
  Serious: Yes (Hospitalization, Other)
  Sender: FDA-Public Use
  Company Number: PHJP2017JP014834

PATIENT
  Age: 70 Year
  Sex: Female

DRUGS (3)
  1. TAFINLAR [Suspect]
     Active Substance: DABRAFENIB MESYLATE
     Indication: MALIGNANT MELANOMA STAGE III
     Dosage: 300 MG, QD
     Route: 048
     Dates: start: 20170411
  2. MEKINIST [Suspect]
     Active Substance: TRAMETINIB DIMETHYL SULFOXIDE
     Indication: MALIGNANT MELANOMA STAGE III
     Dosage: 2 MG, QD
     Route: 048
     Dates: start: 20170411, end: 201704
  3. TAFINLAR [Suspect]
     Active Substance: DABRAFENIB MESYLATE
     Dosage: 200 MG, QD
     Route: 048

REACTIONS (10)
  - Blood creatine phosphokinase increased [Unknown]
  - Myoglobin urine present [Recovered/Resolved]
  - Pyrexia [Unknown]
  - Oedema peripheral [Unknown]
  - Rhabdomyolysis [Recovered/Resolved]
  - Blood potassium decreased [Unknown]
  - Tremor [Unknown]
  - Hypoaesthesia [Unknown]
  - Chills [Unknown]
  - Blood sodium decreased [Unknown]

NARRATIVE: CASE EVENT DATE: 201704
